FAERS Safety Report 26035724 (Version 1)
Quarter: 2025Q4

REPORT INFORMATION
  Report Type: Spontaneous
  Country: US (occurrence: None)
  Receive Date: 20251112
  Receipt Date: 20251112
  Transmission Date: 20260118
  Serious: Yes (Other)
  Sender: FDA-CTU
  Company Number: None

PATIENT
  Age: 71 Year
  Sex: Female

DRUGS (1)
  1. AMBRISENTAN [Suspect]
     Active Substance: AMBRISENTAN
     Indication: Cor pulmonale chronic
     Dosage: 10MG DAILY ORAL ?
     Route: 048

REACTIONS (3)
  - Nasal congestion [None]
  - Respiratory tract congestion [None]
  - Gallbladder disorder [None]
